FAERS Safety Report 24205049 (Version 1)
Quarter: 2024Q3

REPORT INFORMATION
  Report Type: Spontaneous
  Country: US (occurrence: None)
  Receive Date: 20240812
  Receipt Date: 20240812
  Transmission Date: 20241016
  Serious: Yes (Other)
  Sender: Public
  Company Number: None

PATIENT
  Age: 67 Year
  Sex: Male

DRUGS (1)
  1. NUCALA [Suspect]
     Active Substance: MEPOLIZUMAB
     Indication: Nasal polyps
     Dosage: OTHER FREQUENCY : EVERY4WEEKS;?
     Route: 058
     Dates: start: 20240329, end: 20240717

REACTIONS (2)
  - Malaise [None]
  - Fatigue [None]

NARRATIVE: CASE EVENT DATE: 20240329
